FAERS Safety Report 5841618-9 (Version None)
Quarter: 2008Q3

REPORT INFORMATION
  Report Type: 
  Country: None (occurrence: None)
  Receive Date: 20080812
  Receipt Date: 20080731
  Transmission Date: 20090109
  Serious: Yes (Other)
  Sender: FDA-Public Use
  Company Number: US-BAYER-200813170BCC

PATIENT
  Age: 59 Year
  Sex: Female
  Weight: 55 kg

DRUGS (5)
  1. PHILLIPS MILK OF MAGNESIA ORIGINAL [Suspect]
     Indication: CONSTIPATION
     Dosage: TOTAL DAILY DOSE: 15 ML
     Route: 048
     Dates: start: 20080730
  2. PREVACID [Concomitant]
  3. PAROXETINE HCL [Concomitant]
  4. CALTRATE [Concomitant]
  5. KIRKLAND MULTIVITAMIN [Concomitant]

REACTIONS (5)
  - CONSTIPATION [None]
  - FAECES HARD [None]
  - HAEMORRHOIDS [None]
  - NAUSEA [None]
  - RECTAL HAEMORRHAGE [None]
